FAERS Safety Report 6137450-1 (Version None)
Quarter: 2009Q1

REPORT INFORMATION
  Report Type: 
  Country: None (occurrence: None)
  Receive Date: 20090326
  Receipt Date: 20090313
  Transmission Date: 20090719
  Serious: No
  Sender: FDA-Public Use
  Company Number: 236840J08USA

PATIENT
  Age: 49 Year
  Sex: Female
  Weight: 73 kg

DRUGS (12)
  1. REBIF [Suspect]
     Indication: MULTIPLE SCLEROSIS
     Dosage: 44 MCG, 3 IN 1 WEEKS, SUBCUTANEOUS
     Route: 058
     Dates: start: 20070627
  2. PREVACID (LANSNPRAZLE) [Concomitant]
  3. LASIX (FUROSEMIDE /00032601/) [Concomitant]
  4. POTASSIUM (POTASSIUM /00031401/) [Concomitant]
  5. XANAX [Concomitant]
  6. TRICOR [Concomitant]
  7. UNSPECIFIED MEDTCATION (OTHER CHOLESTEROL AND  TRIGLYCERIDE REDUCERS) [Concomitant]
  8. UNSPECIFIED MEDICATION (ALL OTHER THERAPEUTIC PRODUCTS) [Concomitant]
  9. UNSPECIFIED LIQUID FOR BOWELS (ALL OTHER THERAPEUTIC PRODUCTS) [Concomitant]
  10. ALEVE (NAPROXEN SODIUM)   /00032601/) [Concomitant]
  11. PERCOCET [Concomitant]
  12. UNSPECIFIED ANPIDEPRESSANT (ANTIDEPRESSANTS) [Concomitant]

REACTIONS (11)
  - ANXIETY [None]
  - CONSTIPATION [None]
  - CONVULSION [None]
  - FAECALOMA [None]
  - GASTROINTESTINAL DISORDER [None]
  - GASTROINTESTINAL HYPOMOTILITY [None]
  - INTESTINAL POLYP [None]
  - PAIN IN EXTREMITY [None]
  - SINUSITIS [None]
  - STRESS [None]
  - TREMOR [None]
